FAERS Safety Report 9373653 (Version 1)
Quarter: 2013Q2

REPORT INFORMATION
  Report Type: Other
  Country: FR (occurrence: FR)
  Receive Date: 20130627
  Receipt Date: 20130627
  Transmission Date: 20140414
  Serious: Yes (Other)
  Sender: FDA-Public Use
  Company Number: FR-RB-055490-13

PATIENT
  Sex: 0

DRUGS (2)
  1. BUPRENORPHINE UNSPECIFIED [Suspect]
     Indication: PRODUCT USED FOR UNKNOWN INDICATION
     Route: 065
  2. BUPRENORPHINE UNSPECIFIED [Suspect]
     Dosage: DOSING DETAILS UNKNOWN
     Route: 065

REACTIONS (3)
  - Hepatic steatosis [Unknown]
  - Inflammation [Unknown]
  - Liver function test abnormal [Unknown]
